FAERS Safety Report 9427084 (Version 1)
Quarter: 2013Q3

REPORT INFORMATION
  Report Type: Report from Study
  Country: US (occurrence: US)
  Receive Date: 20130730
  Receipt Date: 20130730
  Transmission Date: 20140515
  Serious: No
  Sender: FDA-Public Use
  Company Number: US-ABBOTT-12P-163-1003204-00

PATIENT
  Age: 64 Year
  Sex: Male

DRUGS (4)
  1. NIASPAN [Suspect]
     Indication: PRODUCT USED FOR UNKNOWN INDICATION
     Dosage: ADVANCED TO TWICE DAILY 30 DAYS AGO.
  2. XARELTO [Suspect]
     Indication: PRODUCT USED FOR UNKNOWN INDICATION
  3. COUMADIN [Suspect]
     Indication: PRODUCT USED FOR UNKNOWN INDICATION
     Dosage: 500MG DAILY
  4. COUMADIN [Suspect]

REACTIONS (4)
  - Intestinal haemorrhage [Recovered/Resolved]
  - Intestinal haemorrhage [Unknown]
  - Flushing [Recovered/Resolved]
  - Pruritus [Recovered/Resolved]
